FAERS Safety Report 9121119 (Version 2)
Quarter: 2013Q4

REPORT INFORMATION
  Report Type: Report from Study
  Country: LT (occurrence: LT)
  Receive Date: 20130226
  Receipt Date: 20131024
  Transmission Date: 20140711
  Serious: Yes (Other)
  Sender: FDA-Public Use
  Company Number: PHHY2013LT017111

PATIENT
  Age: 34 Year
  Sex: Female
  Weight: 59 kg

DRUGS (4)
  1. FTY 720 [Suspect]
     Indication: MULTIPLE SCLEROSIS
     Dosage: 0.5 MG, QD
     Route: 048
     Dates: start: 20120412, end: 20130126
  2. BETAFERON [Suspect]
  3. TOLPERISONE [Concomitant]
     Indication: HYPERTONIA
     Dosage: 150 MG, BID
     Route: 048
     Dates: start: 2012
  4. AMANTADINE [Concomitant]
     Indication: FATIGUE
     Dosage: 100 MG, BID
     Route: 048
     Dates: start: 20010222

REACTIONS (6)
  - Cervix carcinoma [Recovered/Resolved]
  - Uterine haemorrhage [Unknown]
  - Metrorrhagia [Unknown]
  - Anaemia [Unknown]
  - Expanded disability status scale score increased [Unknown]
  - Immunosuppression [Unknown]
